FAERS Safety Report 4318135-0 (Version None)
Quarter: 2004Q1

REPORT INFORMATION
  Report Type: 
  Country: None (occurrence: None)
  Receive Date: 20040317
  Receipt Date: 20040223
  Transmission Date: 20041129
  Serious: Yes (Hospitalization)
  Sender: FDA-Public Use
  Company Number: US-GLAXOSMITHKLINE-A0499667A

PATIENT
  Age: 60 Year
  Sex: Female

DRUGS (1)
  1. IMITREX [Suspect]
     Indication: DRUG USE FOR UNKNOWN INDICATION
     Route: 065

REACTIONS (10)
  - ANAEMIA [None]
  - BLOOD AMYLASE INCREASED [None]
  - CHOLELITHIASIS [None]
  - DEPRESSION [None]
  - DYSPEPSIA [None]
  - EAR PAIN [None]
  - MEMORY IMPAIRMENT [None]
  - PAIN [None]
  - SINUSITIS [None]
  - THYROID NEOPLASM [None]
